FAERS Safety Report 16402631 (Version 1)
Quarter: 2019Q2

REPORT INFORMATION
  Report Type: Spontaneous
  Country: US (occurrence: US)
  Receive Date: 20190607
  Receipt Date: 20190607
  Transmission Date: 20190711
  Serious: No
  Sender: FDA-Public Use
  Company Number: US-TEVA-2019-US-1053120

PATIENT
  Sex: Female

DRUGS (2)
  1. CLONAZEPAM. [Suspect]
     Active Substance: CLONAZEPAM
     Indication: PANIC ATTACK
  2. CLONAZEPAM. [Suspect]
     Active Substance: CLONAZEPAM
     Indication: ANXIETY
     Dates: start: 20190502

REACTIONS (7)
  - Fear [Unknown]
  - Tremor [Unknown]
  - Withdrawal syndrome [Unknown]
  - Malaise [Unknown]
  - Headache [Unknown]
  - Palpitations [Unknown]
  - Insomnia [Unknown]
